FAERS Safety Report 25915526 (Version 2)
Quarter: 2025Q4

REPORT INFORMATION
  Report Type: Spontaneous
  Country: MX (occurrence: MX)
  Receive Date: 20251013
  Receipt Date: 20251205
  Transmission Date: 20260117
  Serious: Yes (Death)
  Sender: GUERBET
  Company Number: MX-GUERBET / JUAMA S.A. DE C.V-MX-20250030

PATIENT
  Age: 59 Year
  Sex: Female
  Weight: 60 kg

DRUGS (3)
  1. OPTIRAY 350 [Suspect]
     Active Substance: IOVERSOL
     Indication: Computerised tomogram thorax
     Route: 042
     Dates: start: 20251002, end: 20251002
  2. OPTIRAY 350 [Suspect]
     Active Substance: IOVERSOL
     Indication: Computerised tomogram abdomen
  3. ISOTONIC SODIUM CHLORIDE SOLUTION [Concomitant]
     Active Substance: SODIUM CHLORIDE
     Indication: Catheter management
     Route: 042
     Dates: start: 20251002, end: 20251002

REACTIONS (7)
  - Ocular hyperaemia [Fatal]
  - Blood pressure decreased [Fatal]
  - Stupor [Fatal]
  - Dyspnoea [Fatal]
  - Feeling abnormal [Fatal]
  - Oxygen saturation decreased [Fatal]
  - Bradycardia [Fatal]

NARRATIVE: CASE EVENT DATE: 20251002
